FAERS Safety Report 6594441-4 (Version None)
Quarter: 2010Q1

REPORT INFORMATION
  Report Type: 
  Country: None (occurrence: None)
  Receive Date: 20100222
  Receipt Date: 20100210
  Transmission Date: 20100710
  Serious: Yes (Hospitalization)
  Sender: FDA-Public Use
  Company Number: GBWYE198317JAN07

PATIENT
  Age: 30 Year
  Sex: Female
  Weight: 84 kg

DRUGS (5)
  1. VENLAFAXINE HCL [Suspect]
     Dosage: OVERDOSE OF 11 TABLETS OF 75MG
     Route: 048
     Dates: start: 20060801
  2. VENLAFAXINE HCL [Suspect]
     Dosage: UNKNOWN
     Route: 048
  3. ALCOHOL [Suspect]
     Dosage: UNKNOWN
     Dates: start: 20060801
  4. CLOZARIL [Suspect]
     Indication: SCHIZOPHRENIA
     Route: 048
     Dates: start: 20051228
  5. CLOZARIL [Suspect]
     Dosage: OVERDOSE OF 1400MG IN 1 DAY
     Route: 048
     Dates: start: 20060801

REACTIONS (5)
  - INTENTIONAL OVERDOSE [None]
  - NEUROLEPTIC MALIGNANT SYNDROME [None]
  - RHINORRHOEA [None]
  - STAPHYLOCOCCAL INFECTION [None]
  - SUICIDE ATTEMPT [None]
